FAERS Safety Report 11708012 (Version 1)
Quarter: 2015Q4

REPORT INFORMATION
  Report Type: Spontaneous
  Country: GB (occurrence: GB)
  Receive Date: 20151107
  Receipt Date: 20151107
  Transmission Date: 20160304
  Serious: Yes (Other)
  Sender: FDA-Public Use
  Company Number: GB-TEVA-605911ACC

PATIENT
  Age: 41 Year
  Sex: Male
  Weight: 85 kg

DRUGS (6)
  1. SOLPADEINE (ACETAMINOPHEN\CODEINE) [Concomitant]
     Active Substance: ACETAMINOPHEN\CODEINE PHOSPHATE
  2. ANADIN [Concomitant]
     Active Substance: IBUPROFEN
  3. CIPROFLOXACIN. [Concomitant]
     Active Substance: CIPROFLOXACIN
  4. TRIMETHOPRIM. [Suspect]
     Active Substance: TRIMETHOPRIM
     Indication: ORCHITIS
     Dosage: 400 MILLIGRAM DAILY;
     Route: 048
     Dates: start: 20151005, end: 20151015
  5. IBUPROFEN. [Concomitant]
     Active Substance: IBUPROFEN
  6. PARACETAMOL [Concomitant]
     Active Substance: ACETAMINOPHEN

REACTIONS (1)
  - Chills [Recovering/Resolving]

NARRATIVE: CASE EVENT DATE: 20151006
